FAERS Safety Report 8124362-7 (Version None)
Quarter: 2012Q1

REPORT INFORMATION
  Report Type: 
  Country: None (occurrence: None)
  Receive Date: 20120209
  Receipt Date: 20120131
  Transmission Date: 20120608
  Serious: Yes (Hospitalization)
  Sender: FDA-Public Use
  Company Number: US-JNJFOC-20120200663

PATIENT
  Sex: Male
  Weight: 104.33 kg

DRUGS (4)
  1. KLONOPIN [Concomitant]
     Indication: SLEEP DISORDER
     Route: 048
  2. KLONOPIN [Concomitant]
     Indication: ANXIETY
     Route: 048
  3. KLONOPIN [Concomitant]
     Indication: BLOOD PRESSURE
     Route: 048
  4. DURAGESIC-100 [Suspect]
     Indication: CANCER PAIN
     Route: 062
     Dates: start: 20110101

REACTIONS (8)
  - SMALL INTESTINE CARCINOMA [None]
  - PRODUCT ADHESION ISSUE [None]
  - PRODUCT QUALITY ISSUE [None]
  - ABDOMINAL HERNIA [None]
  - WRONG TECHNIQUE IN DRUG USAGE PROCESS [None]
  - VOLVULUS [None]
  - APPLICATION SITE REACTION [None]
  - ADVERSE EVENT [None]
